FAERS Safety Report 23484529 (Version 1)
Quarter: 2024Q1

REPORT INFORMATION
  Report Type: Spontaneous
  Country: ES (occurrence: ES)
  Receive Date: 20240206
  Receipt Date: 20240206
  Transmission Date: 20240409
  Serious: Yes (Other)
  Sender: FDA-Public Use
  Company Number: None

PATIENT
  Sex: Female

DRUGS (14)
  1. CYCLOPHOSPHAMIDE [Suspect]
     Active Substance: CYCLOPHOSPHAMIDE
     Indication: Plasma cell leukaemia
     Dosage: VTD-PACE X 4, FIRST LINE
     Route: 065
     Dates: start: 2016
  2. CYCLOPHOSPHAMIDE [Suspect]
     Active Substance: CYCLOPHOSPHAMIDE
     Dosage: VCD, FOURTH LINE
     Route: 065
     Dates: start: 2017
  3. BORTEZOMIB [Suspect]
     Active Substance: BORTEZOMIB
     Indication: Plasma cell leukaemia
     Dosage: VTD-PACE X 4, FIRST LINE
     Route: 065
     Dates: start: 2016
  4. BORTEZOMIB [Suspect]
     Active Substance: BORTEZOMIB
     Dosage: VCD, FOURTH LINE
     Route: 065
     Dates: start: 2017
  5. DOXORUBICIN [Suspect]
     Active Substance: DOXORUBICIN
     Indication: Plasma cell leukaemia
     Dosage: VTD-PACE X 4, FIRST LINE
     Route: 065
     Dates: start: 2016
  6. DEXAMETHASONE [Suspect]
     Active Substance: DEXAMETHASONE
     Indication: Plasma cell leukaemia
     Dosage: VTD-PACE X 4, FIRST LINE
     Route: 065
     Dates: start: 2016
  7. DEXAMETHASONE [Suspect]
     Active Substance: DEXAMETHASONE
     Dosage: VCD, FOURTH LINE
     Route: 065
     Dates: start: 2017
  8. THALIDOMIDE [Suspect]
     Active Substance: THALIDOMIDE
     Indication: Plasma cell leukaemia
     Dosage: VTD-PACE X 4, FIRST LINE
     Route: 065
     Dates: start: 2016
  9. CISPLATIN [Suspect]
     Active Substance: CISPLATIN
     Indication: Plasma cell leukaemia
     Dosage: VTD-PACE X 4, FIRST LINE
     Route: 065
     Dates: start: 2016
  10. ETOPOSIDE [Suspect]
     Active Substance: ETOPOSIDE
     Indication: Plasma cell leukaemia
     Dosage: VTD-PACE X 4, FIRST LINE
     Route: 065
     Dates: start: 2016
  11. CARFILZOMIB [Concomitant]
     Active Substance: CARFILZOMIB
     Indication: Plasma cell leukaemia
     Dosage: KRD, SECOND LINE
     Route: 065
     Dates: start: 2017
  12. LENALIDOMIDE [Concomitant]
     Active Substance: LENALIDOMIDE
     Indication: Plasma cell leukaemia
     Dosage: KRD, SECOND LINE
     Route: 065
     Dates: start: 2017
  13. DEXAMETHASONE [Concomitant]
     Active Substance: DEXAMETHASONE
     Indication: Plasma cell leukaemia
     Dosage: KRD, SECOND LINE
     Route: 065
     Dates: start: 2017
  14. DARATUMUMAB [Concomitant]
     Active Substance: DARATUMUMAB
     Indication: Plasma cell leukaemia
     Dosage: THIRD LINE, MONOTHERAPY
     Route: 065
     Dates: start: 2017

REACTIONS (3)
  - Chronic graft versus host disease [Unknown]
  - Neuropathy peripheral [Unknown]
  - Therapy partial responder [Unknown]

NARRATIVE: CASE EVENT DATE: 20160101
